FAERS Safety Report 15467258 (Version 2)
Quarter: 2018Q4

REPORT INFORMATION
  Report Type: Spontaneous
  Country: US (occurrence: US)
  Receive Date: 20181005
  Receipt Date: 20181012
  Transmission Date: 20190204
  Serious: Yes (Hospitalization)
  Sender: FDA-Public Use
  Company Number: US-HORIZON-RAV-0166-2018

PATIENT
  Age: 10 Month
  Sex: Male

DRUGS (6)
  1. CITRULLINE [Concomitant]
     Active Substance: CITRULLINE
  2. DIAZOXIDE [Concomitant]
     Active Substance: DIAZOXIDE
  3. RAVICTI [Suspect]
     Active Substance: GLYCEROL PHENYLBUTYRATE
     Indication: UREA CYCLE DISORDER
     Dosage: 0.9 ML EVERY 8 HOURS
     Route: 048
     Dates: start: 201801
  4. ZANTAC [Concomitant]
     Active Substance: RANITIDINE HYDROCHLORIDE
  5. LYSINE [Concomitant]
     Active Substance: LYSINE
  6. DIURAL [Concomitant]
     Active Substance: FUROSEMIDE

REACTIONS (1)
  - Abnormal clotting factor [Recovered/Resolved]

NARRATIVE: CASE EVENT DATE: 201808
